FAERS Safety Report 6654738-6 (Version None)
Quarter: 2010Q1

REPORT INFORMATION
  Report Type: 
  Country: None (occurrence: None)
  Receive Date: 20100326
  Receipt Date: 20100319
  Transmission Date: 20100710
  Serious: Yes (Hospitalization)
  Sender: FDA-Public Use
  Company Number: FR-WATSON-2010-03351

PATIENT

DRUGS (5)
  1. MEPROBAMATE [Suspect]
     Indication: INTENTIONAL OVERDOSE
     Dosage: UNK
     Route: 048
  2. PROPRANOLOL [Suspect]
     Indication: INTENTIONAL OVERDOSE
     Dosage: 2 G, SINGLE
     Route: 048
  3. PAROXETINE HCL [Suspect]
     Indication: INTENTIONAL OVERDOSE
     Dosage: UNK
     Route: 048
  4. PARACETAMOL [Suspect]
     Indication: INTENTIONAL OVERDOSE
     Route: 048
  5. DEXTROPROPOXYFENE [Suspect]
     Indication: INTENTIONAL OVERDOSE
     Dosage: UNK
     Route: 048

REACTIONS (4)
  - CARDIAC ARREST [None]
  - CARDIOGENIC SHOCK [None]
  - MULTIPLE DRUG OVERDOSE [None]
  - OVERDOSE [None]
